FAERS Safety Report 23574508 (Version 1)
Quarter: 2024Q1

REPORT INFORMATION
  Report Type: Spontaneous
  Country: US (occurrence: US)
  Receive Date: 20240228
  Receipt Date: 20240228
  Transmission Date: 20240409
  Serious: No
  Sender: FDA-Public Use
  Company Number: None

PATIENT
  Sex: Male
  Weight: 107 kg

DRUGS (6)
  1. CABENUVA [Suspect]
     Active Substance: CABOTEGRAVIR\RILPIVIRINE
     Indication: HIV infection
     Dosage: UNK (600MG/3ML-900MG/3ML INJECT 1 EACH INTO THE MUSCLE ONCE FOR 1 DOSE)
     Route: 030
     Dates: start: 20231214, end: 20231214
  2. CABENUVA [Suspect]
     Active Substance: CABOTEGRAVIR\RILPIVIRINE
  3. CABENUVA [Suspect]
     Active Substance: CABOTEGRAVIR\RILPIVIRINE
  4. DOVATO [Suspect]
     Active Substance: DOLUTEGRAVIR SODIUM\LAMIVUDINE
     Indication: HIV infection
     Dosage: 1 DF, QD (IN MORNING, 50-300 MG)
     Route: 048
  5. GENVOYA [Suspect]
     Active Substance: COBICISTAT\ELVITEGRAVIR\EMTRICITABINE\TENOFOVIR ALAFENAMIDE FUMARATE
     Indication: HIV infection
     Dosage: UNK
     Dates: start: 20171115
  6. WEGOVY [Concomitant]
     Active Substance: SEMAGLUTIDE
     Indication: Weight decreased
     Dosage: 1 MG, WE (1MG/0.5ML PEN INJECTOR INJECTION, DISPENSE: 2ML, REFILL: 3)
     Route: 058

REACTIONS (5)
  - Depression [Unknown]
  - Middle insomnia [Unknown]
  - Bronchitis [Unknown]
  - COVID-19 [Unknown]
  - Treatment noncompliance [Unknown]
